FAERS Safety Report 6862478-3 (Version None)
Quarter: 2010Q3

REPORT INFORMATION
  Report Type: 
  Country: None (occurrence: None)
  Receive Date: 20100721
  Receipt Date: 20100713
  Transmission Date: 20110219
  Serious: Yes (Other)
  Sender: FDA-Public Use
  Company Number: US-BAYER-201028300NA

PATIENT
  Age: 56 Year
  Sex: Female

DRUGS (1)
  1. ANGELIQ [Suspect]
     Indication: PRODUCT USED FOR UNKNOWN INDICATION
     Route: 048

REACTIONS (2)
  - DYSARTHRIA [None]
  - SPEECH DISORDER [None]
